FAERS Safety Report 15110567 (Version 1)
Quarter: 2018Q3

REPORT INFORMATION
  Report Type: Spontaneous
  Country: SK (occurrence: SK)
  Receive Date: 20180705
  Receipt Date: 20180705
  Transmission Date: 20181010
  Serious: Yes (Other)
  Sender: FDA-Public Use
  Company Number: SK-PFIZER INC-2018267682

PATIENT
  Age: 34 Year
  Sex: Female
  Weight: 76 kg

DRUGS (5)
  1. COAXIL [Suspect]
     Active Substance: TIANEPTINE SODIUM
     Indication: DEPRESSION
     Dosage: 12.5 MG, ONCE A DAY
     Route: 048
     Dates: start: 20180424, end: 20180511
  2. SERTRALINE HCL [Suspect]
     Active Substance: SERTRALINE HYDROCHLORIDE
     Dosage: UNK
     Dates: start: 201805
  3. VIDONORM [Concomitant]
     Indication: CARDIAC DISORDER
     Dosage: UNK
     Route: 048
  4. CONCOR [Concomitant]
     Active Substance: BISOPROLOL FUMARATE
     Indication: CARDIAC DISORDER
     Dosage: UNK
     Route: 048
  5. TEBOKAN [Concomitant]
     Active Substance: GINKGO
     Indication: PRODUCT USED FOR UNKNOWN INDICATION
     Dosage: UNK
     Route: 048

REACTIONS (15)
  - Panic attack [Recovered/Resolved]
  - Blood pressure increased [Recovered/Resolved]
  - Underdose [Unknown]
  - Muscle twitching [Recovered/Resolved]
  - Vomiting [Recovered/Resolved]
  - Serotonin syndrome [Unknown]
  - Rash macular [Recovered/Resolved]
  - Epistaxis [Recovered/Resolved]
  - Product use issue [Recovered/Resolved]
  - Swollen tongue [Unknown]
  - Diarrhoea [Recovered/Resolved]
  - Headache [Recovered/Resolved]
  - Malaise [Recovered/Resolved]
  - Tremor [Recovered/Resolved]
  - Lip swelling [Unknown]

NARRATIVE: CASE EVENT DATE: 201804
